FAERS Safety Report 7490776-1 (Version None)
Quarter: 2011Q2

REPORT INFORMATION
  Report Type: 
  Country: None (occurrence: None)
  Receive Date: 20110519
  Receipt Date: 20110506
  Transmission Date: 20111010
  Serious: Yes (Death, Other)
  Sender: FDA-Public Use
  Company Number: US-BAYER-200838749NA

PATIENT
  Age: 57 Year
  Sex: Female
  Weight: 90 kg

DRUGS (34)
  1. HEPARIN [Concomitant]
     Dosage: 40,000UNITS
     Route: 042
     Dates: start: 20030418, end: 20030418
  2. DOBUTAMINE HYDROCHLORIDE [Concomitant]
     Dosage: UNK
     Route: 042
     Dates: start: 20030418, end: 20030418
  3. VERPAMIL HCL [Concomitant]
     Dosage: UNK
     Route: 042
     Dates: start: 20030418, end: 20030418
  4. TRASYLOL [Suspect]
     Indication: CORONARY ARTERY BYPASS
     Dosage: PUMP PRIME 300 CC
     Route: 042
     Dates: start: 20030418, end: 20030418
  5. FOLTX [CYANOCOBALAMIN,FOLIC ACID,PYRIDOXINE HYDROCHLORIDE] [Concomitant]
     Dosage: ONE DAILY
     Route: 048
  6. VITAMIN E [Concomitant]
     Dosage: 400 IU, BID
     Route: 048
  7. ZOCOR [Concomitant]
     Dosage: 20 MG, UNK
     Route: 048
  8. HEPARIN [Concomitant]
     Dosage: 30000 U, UNK
     Route: 042
  9. VERSED [Concomitant]
     Dosage: 19 MG, UNK
     Route: 042
     Dates: start: 20030418, end: 20030418
  10. SINGULAIR [Concomitant]
     Dosage: 10 MG, UNK
     Route: 048
  11. ACETYLSALICYLIC ACID SRT [Concomitant]
     Dosage: 325 MG, UNK
     Route: 048
  12. AMIODARONE HCL [Concomitant]
     Dosage: 150 MG BOLUS
     Route: 042
     Dates: start: 20030418, end: 20030418
  13. SYNTHROID [Concomitant]
     Dosage: 0.1 MG, UNK
     Route: 048
  14. VALIUM [Concomitant]
     Dosage: 2 MG, UNK
     Route: 048
  15. BECONASE [Concomitant]
     Dosage: 1 PUFF(S), QD
  16. PAPAVERINE HCL [Concomitant]
     Dosage: 2 ML, UNK
     Route: 042
  17. PLATELETS [Concomitant]
     Dosage: 1 U, UNK
     Dates: start: 20030418
  18. TRASYLOL [Suspect]
     Indication: THROMBECTOMY
  19. MIACALCIN [Concomitant]
     Dosage: ONE SQUIRT DAILY
  20. NORVASC [Concomitant]
     Dosage: 5 MG
     Route: 048
  21. ISOSORBIDE MONONITRATE [Concomitant]
     Dosage: 30 MG
  22. LIDOCAINE [Concomitant]
     Dosage: 200 MG, UNK
     Route: 042
     Dates: start: 20030418, end: 20030418
  23. ESTRAGEST [Concomitant]
     Dosage: ONE DAILY
     Route: 048
  24. CALCIUM WITH VITAMIN D [Concomitant]
     Dosage: 500 MG, UNK
     Route: 048
  25. NORCURON [Concomitant]
     Dosage: UNK
     Dates: start: 20030418, end: 20030418
  26. ZINACEF [Concomitant]
     Dosage: 1.5 G, UNK
     Route: 042
     Dates: start: 20030418, end: 20030418
  27. PLAVIX [Concomitant]
     Dosage: 75 MG, UNK
     Route: 048
  28. HEPARIN [Concomitant]
     Dosage: 3000 U
     Route: 042
  29. SODIUM BICARBONATE [Concomitant]
     Dosage: 50 MEQ, UNK
     Route: 042
  30. PROTAMINE SULFATE [Concomitant]
     Dosage: 250 MG, UNK
     Route: 042
     Dates: start: 20030418, end: 20030418
  31. ALBUTEROL [Concomitant]
     Dosage: UNK
     Dates: start: 20030418, end: 20030418
  32. MAGNESIUM [MAGNESIUM] [Concomitant]
     Dosage: 7 MBQ, BID
     Route: 048
  33. LIDOCAINE [Concomitant]
     Dosage: 100 MG, TID
     Route: 042
     Dates: start: 20030418, end: 20030418
  34. DOPAMINE HCL [Concomitant]
     Dosage: UNK
     Route: 042
     Dates: start: 20030418, end: 20030418

REACTIONS (15)
  - EMOTIONAL DISTRESS [None]
  - DEATH [None]
  - STRESS [None]
  - PAIN [None]
  - ANHEDONIA [None]
  - UNEVALUABLE EVENT [None]
  - RENAL INJURY [None]
  - FEAR [None]
  - RENAL IMPAIRMENT [None]
  - ANXIETY [None]
  - INJURY [None]
  - MULTI-ORGAN FAILURE [None]
  - MYOCARDIAL INFARCTION [None]
  - ORGAN FAILURE [None]
  - RENAL FAILURE [None]
